FAERS Safety Report 11658595 (Version 2)
Quarter: 2015Q4

REPORT INFORMATION
  Report Type: Other
  Country: JP (occurrence: JP)
  Receive Date: 20151026
  Receipt Date: 20151128
  Transmission Date: 20160304
  Serious: No
  Sender: FDA-Public Use
  Company Number: PHHY2015JP137597

PATIENT
  Age: 82 Year
  Sex: Male

DRUGS (1)
  1. RIVASTACH [Suspect]
     Active Substance: RIVASTIGMINE
     Indication: DEMENTIA ALZHEIMER^S TYPE
     Dosage: 13.3 MG/24 HRS (27 MG RIVASTIGMINE BASE / PATCH 15 CM2)
     Route: 062

REACTIONS (1)
  - No adverse event [Unknown]
